FAERS Safety Report 9736650 (Version 1)
Quarter: 2013Q4

REPORT INFORMATION
  Report Type: Spontaneous
  Country: US (occurrence: US)
  Receive Date: 20131206
  Receipt Date: 20131206
  Transmission Date: 20140711
  Serious: No
  Sender: FDA-Public Use
  Company Number: US-GILEAD-2009-0022730

PATIENT
  Sex: Male
  Weight: 86.64 kg

DRUGS (14)
  1. LETAIRIS [Suspect]
     Indication: PULMONARY ARTERIAL HYPERTENSION
     Route: 048
     Dates: start: 20090325
  2. LASIX [Concomitant]
  3. METOLAZONE [Concomitant]
  4. ZOCOR [Concomitant]
  5. GLIPIZIDE [Concomitant]
  6. METFORMIN [Concomitant]
  7. ECOTRIN [Concomitant]
  8. LUPRON DEPOT-3 [Concomitant]
  9. COMBIVENT [Concomitant]
  10. ALBUTEROL [Concomitant]
  11. POTASSIUM CHLORIDE [Concomitant]
  12. TEMAZEPAM [Concomitant]
  13. ADVIL [Concomitant]
  14. MULTIVITAMIN [Concomitant]

REACTIONS (2)
  - Feeling of body temperature change [Unknown]
  - Nasal congestion [Unknown]
